FAERS Safety Report 24317032 (Version 1)
Quarter: 2024Q3

REPORT INFORMATION
  Report Type: Report from Study
  Country: EG (occurrence: EG)
  Receive Date: 20240913
  Receipt Date: 20240913
  Transmission Date: 20241017
  Serious: Yes (Hospitalization)
  Sender: SANOFI AVENTIS
  Company Number: EG-SA-2018SA139155

PATIENT
  Age: 15 Year
  Sex: Female

DRUGS (3)
  1. INSULIN GLARGINE [Suspect]
     Active Substance: INSULIN GLARGINE
     Indication: Type 1 diabetes mellitus
     Dosage: 35 IU, QD
     Route: 058
     Dates: start: 2013, end: 2022
  2. INSULIN ASPART [Suspect]
     Active Substance: INSULIN ASPART
     Indication: Type 1 diabetes mellitus
     Dosage: 15, 15, 10 IU DAILY WITH MEALS, TID
     Route: 058
     Dates: start: 2013
  3. INSULIN ASPART [Suspect]
     Active Substance: INSULIN ASPART
     Dosage: 15, 15, 8 IU DAILY WITH MEALS, TID
     Route: 058
     Dates: start: 2022

REACTIONS (4)
  - Hyperglycaemia [Recovered/Resolved]
  - Incorrect dose administered by device [Recovered/Resolved]
  - Device breakage [Unknown]
  - Glycosylated haemoglobin increased [Recovered/Resolved]

NARRATIVE: CASE EVENT DATE: 20180516
